FAERS Safety Report 22334675 (Version 1)
Quarter: 2023Q2

REPORT INFORMATION
  Report Type: Spontaneous
  Country: US (occurrence: None)
  Receive Date: 20230517
  Receipt Date: 20230517
  Transmission Date: 20230721
  Serious: No
  Sender: FDA-Public Use
  Company Number: US-ROCHE-3115767

PATIENT
  Sex: Female

DRUGS (2)
  1. ACTEMRA [Suspect]
     Active Substance: TOCILIZUMAB
     Indication: Giant cell arteritis
     Route: 058
     Dates: start: 20220520
  2. ACTEMRA [Suspect]
     Active Substance: TOCILIZUMAB

REACTIONS (11)
  - Feeling jittery [Unknown]
  - Muscular weakness [Unknown]
  - Dysstasia [Unknown]
  - Balance disorder [Unknown]
  - Urine abnormality [Unknown]
  - Chest pain [Unknown]
  - Palpitations [Unknown]
  - Heart rate irregular [Unknown]
  - Discomfort [Unknown]
  - Faeces pale [Unknown]
  - Insomnia [Unknown]
